FAERS Safety Report 6419125-4 (Version None)
Quarter: 2009Q4

REPORT INFORMATION
  Report Type: 
  Country: None (occurrence: None)
  Receive Date: 20091029
  Receipt Date: 20091020
  Transmission Date: 20100525
  Serious: Yes (Hospitalization)
  Sender: FDA-Public Use
  Company Number: GB-ROCHE-657189

PATIENT

DRUGS (6)
  1. CAPECITABINE [Suspect]
     Indication: BREAST CANCER
     Dosage: DIVIDED DOSES, RECEIVED FOR 14 DAYS EVERY 3 WEEKS, RECEIVED 1 CYCLE
     Route: 065
     Dates: start: 20081028
  2. NEULASTA [Suspect]
     Indication: BREAST CANCER
     Dosage: RECEIVED 4 CYCLES
     Route: 065
     Dates: start: 20081028
  3. EPIRUBICIN [Suspect]
     Indication: BREAST CANCER
     Dosage: RECEIVED 4 CYCLES
     Route: 065
     Dates: start: 20081028
  4. CYCLOPHOSPHAMIDE [Concomitant]
     Indication: BREAST CANCER
     Dates: start: 20090210
  5. METHOTREXATE [Concomitant]
     Indication: BREAST CANCER
     Dates: start: 20090210
  6. FLUOROURACIL [Concomitant]
     Indication: BREAST CANCER
     Dates: start: 20090210

REACTIONS (2)
  - ANXIETY [None]
  - DYSPNOEA [None]
